FAERS Safety Report 19690392 (Version 2)
Quarter: 2021Q3

REPORT INFORMATION
  Report Type: Spontaneous
  Country: US (occurrence: US)
  Receive Date: 20210812
  Receipt Date: 20210929
  Transmission Date: 20211014
  Serious: Yes (Other)
  Sender: FDA-Public Use
  Company Number: US-SUN PHARMACEUTICAL INDUSTRIES LTD-2021R1-294576

PATIENT
  Sex: Male
  Weight: 65.76 kg

DRUGS (2)
  1. EPOPROSTENOL. [Suspect]
     Active Substance: EPOPROSTENOL
     Dosage: 64 NG/KG/MIN CONTINOUS
     Route: 042
     Dates: start: 20210325
  2. EPOPROSTENOL. [Suspect]
     Active Substance: EPOPROSTENOL
     Indication: PULMONARY ARTERIAL HYPERTENSION
     Dosage: 45 NG/KG/MIN CONTINOUS
     Route: 042
     Dates: start: 20210325

REACTIONS (6)
  - Diarrhoea [Unknown]
  - Dyspnoea [Unknown]
  - Pain in jaw [Unknown]
  - Skin lesion [Unknown]
  - Chest discomfort [Unknown]
  - Skin irritation [Unknown]
